FAERS Safety Report 6636663-X (Version None)
Quarter: 2010Q1

REPORT INFORMATION
  Report Type: 
  Country: None (occurrence: None)
  Receive Date: 20100316
  Receipt Date: 20100310
  Transmission Date: 20100710
  Serious: Yes (Hospitalization)
  Sender: FDA-Public Use
  Company Number: A0849873A

PATIENT
  Age: 57 Year
  Sex: Female

DRUGS (34)
  1. ALLI [Suspect]
     Route: 048
     Dates: end: 20100308
  2. SEREVENT [Suspect]
     Indication: ASTHMA
     Route: 055
  3. PREDNISONE [Concomitant]
     Indication: ASTHMA
     Route: 048
  4. SINGULAIR [Concomitant]
     Indication: ASTHMA
     Route: 048
  5. THEOPHYLLINE [Concomitant]
     Indication: ASTHMA
     Route: 048
  6. ALBUTEROL SULATE [Concomitant]
     Indication: ASTHMA
  7. PULMICORT RESPULES [Concomitant]
     Indication: ASTHMA
  8. ALBUTEROL [Concomitant]
     Indication: ASTHMA
  9. AMICAR [Concomitant]
     Indication: VON WILLEBRAND'S DISEASE
  10. UNKNOWN [Concomitant]
  11. SALAGEN [Concomitant]
     Indication: VON WILLEBRAND'S DISEASE
     Route: 048
  12. GAMMAGARD [Concomitant]
     Indication: VON WILLEBRAND'S DISEASE
     Route: 042
  13. LYRICA [Concomitant]
     Route: 048
  14. LOVAZA [Concomitant]
     Route: 048
  15. CENTRUM MVI [Concomitant]
     Route: 048
  16. ATIVAN [Concomitant]
     Route: 048
  17. ANTIVERT [Concomitant]
     Indication: DIZZINESS
     Route: 048
  18. SKELAXIN [Concomitant]
     Route: 048
  19. ZOLOFT [Concomitant]
     Route: 048
  20. TRAZODONE HCL [Concomitant]
     Indication: SLEEP DISORDER
     Route: 048
  21. TEGRETOL [Concomitant]
     Route: 048
  22. VOLTAREN [Concomitant]
     Indication: PAIN
     Route: 061
  23. HYDROCHLOROTHIAZIDE [Concomitant]
     Indication: FLUID RETENTION
     Route: 048
  24. VICODIN [Concomitant]
  25. HYDROMORPHONE HCL [Concomitant]
     Indication: PAIN
     Route: 048
  26. LIDODERM [Concomitant]
     Indication: BACK PAIN
     Route: 062
  27. LIPITOR [Concomitant]
     Route: 048
  28. LISINOPRIL [Concomitant]
     Indication: BLOOD PRESSURE
     Route: 048
  29. AMLODIPINE BESYLATE [Concomitant]
     Indication: HEART VALVE REPLACEMENT
     Route: 048
  30. ASTELIN [Concomitant]
     Indication: SEASONAL ALLERGY
  31. CALCIUM [Concomitant]
  32. METFORMIN HYDROCHLORIDE [Concomitant]
     Indication: METABOLIC DISORDER
     Route: 048
  33. NEXIUM [Concomitant]
     Route: 048
  34. CPAP [Concomitant]
     Indication: ASTHMA

REACTIONS (8)
  - CONSTIPATION [None]
  - DYSURIA [None]
  - FAECALOMA [None]
  - ILEUS PARALYTIC [None]
  - KIDNEY INFECTION [None]
  - NEUROGENIC BLADDER [None]
  - RESIDUAL URINE [None]
  - URINARY TRACT INFECTION [None]
